FAERS Safety Report 20708627 (Version 1)
Quarter: 2022Q2

REPORT INFORMATION
  Report Type: Spontaneous
  Country: US (occurrence: US)
  Receive Date: 20220414
  Receipt Date: 20220414
  Transmission Date: 20220720
  Serious: No
  Sender: FDA-Public Use
  Company Number: US-Blueprint Medicines Corporation-SP-US-2022-000986

PATIENT
  Sex: Male

DRUGS (1)
  1. AYVAKIT [Suspect]
     Active Substance: AVAPRITINIB
     Indication: Malignant mast cell neoplasm
     Dosage: 100MG DAILY
     Route: 048
     Dates: start: 20210724

REACTIONS (4)
  - Anaemia [Unknown]
  - Full blood count abnormal [Unknown]
  - Eye swelling [Unknown]
  - Product dose omission issue [Unknown]
